FAERS Safety Report 5425847-4 (Version None)
Quarter: 2007Q3

REPORT INFORMATION
  Report Type: 
  Country: None (occurrence: None)
  Receive Date: 20070823
  Receipt Date: 20070810
  Transmission Date: 20080115
  Serious: Yes (Other)
  Sender: FDA-Public Use
  Company Number: 2007-162759-NL

PATIENT
  Age: 26 Year
  Sex: Female

DRUGS (1)
  1. NUVARING [Suspect]
     Dates: start: 20070729, end: 20070805

REACTIONS (2)
  - ABDOMINAL PAIN [None]
  - APPENDICECTOMY [None]
